FAERS Safety Report 21269605 (Version 1)
Quarter: 2022Q3

REPORT INFORMATION
  Report Type: Spontaneous
  Country: US (occurrence: None)
  Receive Date: 20220829
  Receipt Date: 20220829
  Transmission Date: 20221027
  Serious: Yes (Hospitalization, Other)
  Sender: FDA-Public Use
  Company Number: None

PATIENT
  Age: 71 Year
  Sex: Female
  Weight: 49.5 kg

DRUGS (1)
  1. REPATHA [Suspect]
     Active Substance: EVOLOCUMAB
     Indication: Blood cholesterol increased
     Dosage: OTHER ROUTE : INJECTION EVERY TWO WEEKS;?
     Route: 050
     Dates: start: 20220616, end: 20220715

REACTIONS (12)
  - Peripheral swelling [None]
  - Peripheral swelling [None]
  - Swelling face [None]
  - Dizziness [None]
  - Burning sensation [None]
  - Pain [None]
  - Oral mucosal eruption [None]
  - Pruritus [None]
  - Dysstasia [None]
  - Livedo reticularis [None]
  - Gait disturbance [None]
  - Weight increased [None]

NARRATIVE: CASE EVENT DATE: 20220701
